FAERS Safety Report 7417887-0 (Version None)
Quarter: 2011Q2

REPORT INFORMATION
  Report Type: 
  Country: None (occurrence: None)
  Receive Date: 20110415
  Receipt Date: 20101216
  Transmission Date: 20111010
  Serious: No
  Sender: FDA-Public Use
  Company Number: DK-BAYER-2010-005587

PATIENT
  Sex: Female

DRUGS (2)
  1. MIRENA [Suspect]
     Indication: CONTRACEPTION
     Dosage: UNK
     Dates: start: 20101011, end: 20101101
  2. CYKLOKAPRON [Concomitant]
     Indication: VAGINAL HAEMORRHAGE

REACTIONS (2)
  - UTERINE LEIOMYOMA [None]
  - POST PROCEDURAL HAEMORRHAGE [None]
